FAERS Safety Report 23263197 (Version 1)
Quarter: 2023Q4

REPORT INFORMATION
  Report Type: Spontaneous
  Country: US (occurrence: None)
  Receive Date: 20231204
  Receipt Date: 20231204
  Transmission Date: 20240110
  Serious: Yes (Disabling)
  Sender: FDA-Public Use
  Company Number: None

PATIENT
  Age: 38 Year
  Sex: Female
  Weight: 54 kg

DRUGS (18)
  1. CIPROFLOXACIN [Suspect]
     Active Substance: CIPROFLOXACIN
     Indication: Urinary tract infection
     Route: 048
     Dates: start: 20161003, end: 20161003
  2. NALTREXONE [Concomitant]
     Active Substance: NALTREXONE
  3. AMITRIPTYLINE [Concomitant]
     Active Substance: AMITRIPTYLINE
  4. SUMATRIPTAN [Concomitant]
     Active Substance: SUMATRIPTAN
  5. UBIQUINOL [Concomitant]
     Active Substance: UBIQUINOL
  6. GLUTATHIONE [Concomitant]
     Active Substance: GLUTATHIONE
  7. MAGNESIUM [Concomitant]
     Active Substance: MAGNESIUM
  8. Butterbur [Concomitant]
  9. FEVERFEW [Concomitant]
     Active Substance: FEVERFEW
  10. VITAMIN C [Concomitant]
     Active Substance: ASCORBIC ACID
  11. VITAMIN D [Concomitant]
     Active Substance: VITAMIN D NOS
  12. VITAMIN E [Concomitant]
     Active Substance: .ALPHA.-TOCOPHEROL
  13. BROMELAINS [Concomitant]
     Active Substance: BROMELAINS
  14. PROBIOTICS NOS [Concomitant]
     Active Substance: PROBIOTICS NOS
  15. PQQ [Concomitant]
  16. LEVOCARNITINE [Concomitant]
     Active Substance: LEVOCARNITINE
  17. D Ribose [Concomitant]
  18. CREATINE [Concomitant]
     Active Substance: CREATINE

REACTIONS (11)
  - Neuropathy peripheral [None]
  - Gait disturbance [None]
  - Tendon pain [None]
  - Anxiety [None]
  - Suicidal ideation [None]
  - Intervertebral disc protrusion [None]
  - Disease recurrence [None]
  - Arthralgia [None]
  - Periarthritis [None]
  - Muscular weakness [None]
  - Movement disorder [None]

NARRATIVE: CASE EVENT DATE: 20161003
